FAERS Safety Report 8843882 (Version 2)
Quarter: 2012Q4

REPORT INFORMATION
  Report Type: 
  Country: US (occurrence: US)
  Receive Date: 20121016
  Receipt Date: 20121108
  Transmission Date: 20130627
  Serious: No
  Sender: FDA-Public Use
  Company Number: US-PFIZER INC-2009271641

PATIENT
  Age: 66 Year
  Sex: Female
  Weight: 154 kg

DRUGS (4)
  1. CELEBREX [Suspect]
     Indication: ARTHRITIS
     Dosage: 200 mg, daily
     Route: 048
     Dates: start: 200908
  2. CELEBREX [Suspect]
     Indication: OSTEOARTHRITIS
  3. BENICAR [Concomitant]
     Indication: BLOOD PRESSURE HIGH
     Dosage: 40 mg, daily
  4. METFORMIN [Concomitant]
     Indication: DIABETES
     Dosage: 500 mg, 2x/day

REACTIONS (1)
  - Seasonal allergy [Not Recovered/Not Resolved]
